FAERS Safety Report 20650843 (Version 2)
Quarter: 2022Q2

REPORT INFORMATION
  Report Type: Spontaneous
  Country: RO (occurrence: RO)
  Receive Date: 20220329
  Receipt Date: 20220425
  Transmission Date: 20220721
  Serious: Yes (Hospitalization, Other)
  Sender: FDA-Public Use
  Company Number: RO-AMGEN-ROUSP2022026646

PATIENT
  Age: 62 Year
  Sex: Female

DRUGS (9)
  1. PEGFILGRASTIM [Suspect]
     Active Substance: PEGFILGRASTIM
     Indication: Prophylaxis
     Dosage: UNK (6 MU/SERIES)
     Route: 065
  2. DARBEPOETIN ALFA [Suspect]
     Active Substance: DARBEPOETIN ALFA
     Indication: Anaemia
     Dosage: 500 MICROGRAM FOR 3 WEEKS
     Route: 065
  3. CLODRONIC ACID [Suspect]
     Active Substance: CLODRONIC ACID
     Indication: Product used for unknown indication
     Dosage: 1600 MILLIGRAM, QD
  4. PACLITAXEL [Concomitant]
     Active Substance: PACLITAXEL
     Indication: Breast cancer metastatic
     Dosage: 270 MILLIGRAM, Q3W
     Route: 065
  5. IBANDRONATE SODIUM [Concomitant]
     Active Substance: IBANDRONATE SODIUM
     Indication: Breast cancer metastatic
     Dosage: 6 MILLIGRAM, QMO FOR EIGHT-MONTH
  6. IBANDRONATE SODIUM [Concomitant]
     Active Substance: IBANDRONATE SODIUM
     Dosage: 50 MILLIGRAM, QD
  7. ANASTROZOLE [Concomitant]
     Active Substance: ANASTROZOLE
     Indication: Breast cancer metastatic
     Dosage: 1 MILLIGRAM, QD
  8. ANASTROZOLE [Concomitant]
     Active Substance: ANASTROZOLE
     Indication: Hormone therapy
  9. CARBOPLATIN [Concomitant]
     Active Substance: CARBOPLATIN
     Indication: Breast cancer metastatic
     Dosage: 570 MILLIGRAM, Q3W
     Route: 065

REACTIONS (4)
  - Metastases to ovary [Recovering/Resolving]
  - Metastases to uterus [Recovering/Resolving]
  - Anaemia [Unknown]
  - Drug ineffective [Recovered/Resolved]
